FAERS Safety Report 5166594-6 (Version None)
Quarter: 2006Q4

REPORT INFORMATION
  Report Type: 
  Country: None (occurrence: None)
  Receive Date: 20061207
  Receipt Date: 20061204
  Transmission Date: 20070319
  Serious: Yes (Hospitalization)
  Sender: FDA-Public Use
  Company Number: GB-AVENTIS-200616113EU

PATIENT
  Age: 54 Year
  Sex: Female

DRUGS (17)
  1. ENOXAPARIN SODIUM [Suspect]
     Indication: THROMBOSIS PROPHYLAXIS
     Route: 058
     Dates: start: 20061022
  2. ACETAMINOPHEN [Concomitant]
     Indication: ANALGESIC EFFECT
     Dates: start: 20060101, end: 20061022
  3. ACETAMINOPHEN [Concomitant]
     Dates: start: 20061023, end: 20061023
  4. ACETAMINOPHEN [Concomitant]
     Dates: start: 20061024, end: 20061028
  5. ACETAMINOPHEN [Concomitant]
     Dates: start: 20061029
  6. CODEINE [Concomitant]
     Indication: ANALGESIC EFFECT
     Dates: start: 20060101, end: 20061022
  7. CODEINE [Concomitant]
     Dates: start: 20061023, end: 20061023
  8. CODEINE [Concomitant]
     Dates: start: 20061024, end: 20061026
  9. CODEINE [Concomitant]
     Dates: start: 20061027, end: 20061027
  10. CODEINE [Concomitant]
     Dates: start: 20061029
  11. TRAMADOL HCL [Concomitant]
     Indication: ANALGESIC EFFECT
     Dates: start: 20061024
  12. SENNA [Concomitant]
     Indication: CONSTIPATION
     Dates: start: 20061024
  13. SENNA [Concomitant]
     Indication: PROPHYLAXIS
     Dates: start: 20061024
  14. SENNA [Concomitant]
     Dates: start: 20061025, end: 20061028
  15. SENNA [Concomitant]
     Dates: start: 20061029
  16. PIRITON [Concomitant]
     Dates: start: 20061024, end: 20061024
  17. CEFUROXIME [Concomitant]
     Indication: PROPHYLAXIS
     Dates: start: 20061023, end: 20061024

REACTIONS (3)
  - HAEMOGLOBIN DECREASED [None]
  - OPERATIVE HAEMORRHAGE [None]
  - VOMITING [None]
